FAERS Safety Report 4986348-0 (Version None)
Quarter: 2006Q2

REPORT INFORMATION
  Report Type: 
  Country: None (occurrence: None)
  Receive Date: 20060428
  Receipt Date: 20060426
  Transmission Date: 20061013
  Serious: Yes (Other)
  Sender: FDA-Public Use
  Company Number: US-GLAXOSMITHKLINE-A0603336A

PATIENT
  Age: 81 Year
  Sex: Male

DRUGS (11)
  1. FEOSOL IRON THERAPY TABLETS [Suspect]
     Indication: ANAEMIA
  2. NITROGLYCERIN [Concomitant]
  3. FOLIC ACID [Concomitant]
  4. ATENOLOL [Concomitant]
  5. SYNTHROID [Concomitant]
  6. ZOCOR [Concomitant]
  7. NORVASC [Concomitant]
  8. COUMADIN [Concomitant]
  9. ASPIRIN [Concomitant]
  10. PROSCAR [Concomitant]
  11. MULTI-VITAMIN [Concomitant]

REACTIONS (2)
  - DIARRHOEA [None]
  - FAECAL INCONTINENCE [None]
